FAERS Safety Report 9129666 (Version 1)
Quarter: 2013Q1

REPORT INFORMATION
  Report Type: Spontaneous
  Country: US (occurrence: US)
  Receive Date: 20130125
  Receipt Date: 20130125
  Transmission Date: 20140127
  Serious: Yes (Hospitalization)
  Sender: FDA-Public Use
  Company Number: CHPA2013US001576

PATIENT
  Age: 76 Year
  Sex: Female

DRUGS (1)
  1. VOLTAREN GEL [Suspect]
     Indication: BACK PAIN
     Dosage: 4 G, BID
     Route: 048
     Dates: start: 201106, end: 201210

REACTIONS (3)
  - Haematochezia [Recovered/Resolved]
  - Off label use [Unknown]
  - Drug administered at inappropriate site [Unknown]
